FAERS Safety Report 9196214 (Version 3)
Quarter: 2014Q1

REPORT INFORMATION
  Report Type: Spontaneous
  Country: US (occurrence: None)
  Receive Date: 20120703
  Receipt Date: 20130107
  Transmission Date: 20141002
  Serious: Yes (Hospitalization)
  Sender: FDA-Public Use
  Company Number: PHEH2012US009021

PATIENT
  Age: 59 Year
  Sex: Female

DRUGS (2)
  1. GILENYA (FTY) CAPSULE, 0.5MG [Suspect]
     Indication: MULTIPLE SCLEROSIS
     Route: 048
     Dates: start: 20110920
  2. AMANTADINE [Concomitant]

REACTIONS (8)
  - Palpitations [None]
  - Blister [None]
  - Joint swelling [None]
  - Skin exfoliation [None]
  - Fatigue [None]
  - Chest discomfort [None]
  - Herpes zoster [None]
  - Rash [None]
